FAERS Safety Report 8509749-2 (Version None)
Quarter: 2012Q3

REPORT INFORMATION
  Report Type: 
  Country: None (occurrence: None)
  Receive Date: 20120713
  Receipt Date: 20120704
  Transmission Date: 20120928
  Serious: Yes (Other)
  Sender: FDA-Public Use
  Company Number: CH-BAXTER-2012BAX006510

PATIENT
  Age: 76 Year
  Sex: Female

DRUGS (2)
  1. RINGER-LACTAT BAXTER [Suspect]
     Route: 041
     Dates: start: 20120427, end: 20120427
  2. PAMIDRONATE DISODIUM [Suspect]
     Route: 041
     Dates: start: 20120427, end: 20120427

REACTIONS (2)
  - APPLICATION SITE OEDEMA [None]
  - APPLICATION SITE REACTION [None]
